FAERS Safety Report 13295766 (Version 2)
Quarter: 2017Q2

REPORT INFORMATION
  Report Type: Spontaneous
  Country: US (occurrence: US)
  Receive Date: 20170303
  Receipt Date: 20170404
  Transmission Date: 20170830
  Serious: Yes (Hospitalization)
  Sender: FDA-Public Use
  Company Number: US-ACTELION-A-NJ2017-150604

PATIENT
  Age: 25 Year
  Sex: Female
  Weight: 65.76 kg

DRUGS (3)
  1. OPSUMIT [Suspect]
     Active Substance: MACITENTAN
     Indication: PULMONARY ARTERIAL HYPERTENSION
     Dosage: 10 MG, QD
     Route: 048
  2. UPTRAVI [Suspect]
     Active Substance: SELEXIPAG
     Indication: PULMONARY ARTERIAL HYPERTENSION
     Dosage: 800 MCG, BID
     Route: 048
  3. ADCIRCA [Concomitant]
     Active Substance: TADALAFIL

REACTIONS (7)
  - Sepsis [Recovered/Resolved]
  - Vomiting [Unknown]
  - Weight decreased [Unknown]
  - Headache [Unknown]
  - Appendicectomy [Unknown]
  - Appendicitis [Recovered/Resolved]
  - Anaesthetic complication [Unknown]
